FAERS Safety Report 8229131-5 (Version None)
Quarter: 2012Q1

REPORT INFORMATION
  Report Type: 
  Country: None (occurrence: None)
  Receive Date: 20120322
  Receipt Date: 20120309
  Transmission Date: 20120608
  Serious: Yes (Death, Hospitalization)
  Sender: FDA-Public Use
  Company Number: US-WATSON-2011-22394

PATIENT
  Sex: Male

DRUGS (6)
  1. TRELSTAR [Suspect]
     Indication: PROSTATE CANCER
     Dosage: 1 INJECTION Q 3 MONTHS
     Dates: start: 20110801, end: 20110801
  2. ASPIRIN [Concomitant]
     Indication: PRODUCT USED FOR UNKNOWN INDICATION
     Dosage: DAILY
     Route: 048
  3. DOXAZOSIN MESYLATE [Concomitant]
     Indication: PRODUCT USED FOR UNKNOWN INDICATION
     Dosage: DAILY
     Route: 048
  4. TRELSTAR [Suspect]
     Dosage: 1 INJECTION Q 3 MONTHS
     Dates: start: 20110128, end: 20110128
  5. TAMSULOSIN HCL [Concomitant]
     Indication: PRODUCT USED FOR UNKNOWN INDICATION
     Dosage: DAILY
     Route: 048
  6. TRELSTAR [Suspect]
     Dosage: 1 INJECTION Q 3 MONTHS
     Dates: start: 20110429, end: 20110429

REACTIONS (2)
  - HOSPITALISATION [None]
  - DEATH [None]
